APPROVED DRUG PRODUCT: PENICILLIN V POTASSIUM
Active Ingredient: PENICILLIN V POTASSIUM
Strength: EQ 250MG BASE
Dosage Form/Route: TABLET;ORAL
Application: A065435 | Product #001 | TE Code: AB
Applicant: AUROBINDO PHARMA LTD
Approved: Apr 29, 2008 | RLD: No | RS: No | Type: RX